FAERS Safety Report 20166462 (Version 1)
Quarter: 2021Q4

REPORT INFORMATION
  Report Type: Spontaneous
  Country: US (occurrence: None)
  Receive Date: 20211208
  Receipt Date: 20211208
  Transmission Date: 20220303
  Serious: Yes (Other)
  Sender: FDA-Public Use
  Company Number: None

PATIENT
  Age: 40 Year
  Sex: Female
  Weight: 45.9 kg

DRUGS (4)
  1. KESIMPTA [Suspect]
     Active Substance: OFATUMUMAB
     Indication: Multiple sclerosis
     Dosage: OTHER QUANTITY : 1 INJECTION(S);?OTHER FREQUENCY : 1ST OF 3 LOADING;?
     Route: 030
     Dates: start: 20211202, end: 20211202
  2. DUPIXENT [Concomitant]
     Active Substance: DUPILUMAB
  3. GABAPENTIN [Concomitant]
     Active Substance: GABAPENTIN
  4. BACLOFEN [Concomitant]
     Active Substance: BACLOFEN

REACTIONS (10)
  - Migraine [None]
  - Eye pain [None]
  - Vision blurred [None]
  - Ocular discomfort [None]
  - Chills [None]
  - Tremor [None]
  - Dysgeusia [None]
  - Nausea [None]
  - Myalgia [None]
  - Fatigue [None]

NARRATIVE: CASE EVENT DATE: 20211202
